FAERS Safety Report 4447529-8 (Version None)
Quarter: 2004Q3

REPORT INFORMATION
  Report Type: 
  Country: None (occurrence: None)
  Receive Date: 20040812
  Receipt Date: 20040610
  Transmission Date: 20050211
  Serious: No
  Sender: FDA-Public Use
  Company Number: USA040669456

PATIENT
  Age: 65 Year
  Sex: Male

DRUGS (2)
  1. CIALIS [Suspect]
     Indication: ERECTILE DYSFUNCTION
     Dates: start: 20040519, end: 20040524
  2. AVENTYL HCL [Concomitant]

REACTIONS (5)
  - ARTHRALGIA [None]
  - HEADACHE [None]
  - HYPERTONIA [None]
  - NAUSEA [None]
  - VISION BLURRED [None]
